FAERS Safety Report 4390746-6 (Version None)
Quarter: 2004Q3

REPORT INFORMATION
  Report Type: 
  Country: None (occurrence: None)
  Receive Date: 20040706
  Receipt Date: 20040706
  Transmission Date: 20050211
  Serious: Yes (Other)
  Sender: FDA-Public Use
  Company Number: None

PATIENT
  Sex: Female

DRUGS (1)
  1. CRYSELLE [Suspect]
     Indication: CONTRACEPTION
     Dosage: 1 PER MOUTH DAILY
     Route: 048
     Dates: start: 20040627, end: 20040701

REACTIONS (2)
  - PHARMACEUTICAL PRODUCT COMPLAINT [None]
  - RASH [None]
